FAERS Safety Report 6229877-4 (Version None)
Quarter: 2009Q2

REPORT INFORMATION
  Report Type: 
  Country: None (occurrence: None)
  Receive Date: 20090615
  Receipt Date: 20090602
  Transmission Date: 20091009
  Serious: Yes (Hospitalization, Other)
  Sender: FDA-Public Use
  Company Number: US-ELI_LILLY_AND_COMPANY-US200905001005

PATIENT
  Age: 57 Year
  Sex: Female

DRUGS (6)
  1. CYMBALTA [Suspect]
     Indication: HEADACHE
     Dosage: 60 MG, DAILY (1/D)
     Dates: start: 20070101
  2. HYDROXYZINE [Concomitant]
  3. ROZEREM [Concomitant]
  4. NEXIUM [Concomitant]
  5. IMITREX [Concomitant]
  6. ZANAFLEX [Concomitant]

REACTIONS (3)
  - ABDOMINAL PAIN [None]
  - DIVERTICULAR PERFORATION [None]
  - RECTAL TENESMUS [None]
